FAERS Safety Report 6938250-2 (Version None)
Quarter: 2010Q3

REPORT INFORMATION
  Report Type: 
  Country: None (occurrence: None)
  Receive Date: 20100824
  Receipt Date: 20100407
  Transmission Date: 20110219
  Serious: No
  Sender: FDA-Public Use
  Company Number: A0853943A

PATIENT
  Age: 60 Year
  Sex: Female

DRUGS (4)
  1. MALARONE [Suspect]
     Indication: LYME DISEASE
     Dosage: 250MG TWICE PER DAY
     Route: 048
     Dates: start: 20090801, end: 20100101
  2. ZOVIRAX [Concomitant]
  3. AZITHROMYCINE ZITHROMAX [Concomitant]
  4. SINGULAIR [Concomitant]

REACTIONS (3)
  - DIZZINESS [None]
  - LYME DISEASE [None]
  - PALPITATIONS [None]
